FAERS Safety Report 5302553-8 (Version None)
Quarter: 2007Q2

REPORT INFORMATION
  Report Type: 
  Country: None (occurrence: None)
  Receive Date: 20070419
  Receipt Date: 20070418
  Transmission Date: 20071010
  Serious: Yes (Death, Hospitalization)
  Sender: FDA-Public Use
  Company Number: GBWYE493919APR07

PATIENT
  Sex: Male

DRUGS (2)
  1. GEMTUZUMAB OZOGAMICIN [Suspect]
     Dosage: UNKNOWN
     Dates: start: 20070326, end: 20070406
  2. CYTARABINE [Concomitant]
     Dosage: UNKNOWN
     Dates: start: 20070326, end: 20070406

REACTIONS (1)
  - SEPSIS [None]
